FAERS Safety Report 21183433 (Version 1)
Quarter: 2022Q3

REPORT INFORMATION
  Report Type: Spontaneous
  Country: DE (occurrence: DE)
  Receive Date: 20220808
  Receipt Date: 20220808
  Transmission Date: 20221027
  Serious: Yes (Death, Other)
  Sender: FDA-Public Use
  Company Number: DE-002147023-NVSC2021DE148710

PATIENT
  Sex: Female

DRUGS (7)
  1. EXEMESTANE [Suspect]
     Active Substance: EXEMESTANE
     Indication: Breast cancer metastatic
     Dosage: 25 MG, DAILY
     Route: 065
     Dates: start: 20210308, end: 20210519
  2. LETROZOLE [Suspect]
     Active Substance: LETROZOLE
     Indication: Breast cancer metastatic
     Dosage: 2.5 MG, QD
     Route: 065
     Dates: start: 20200407, end: 20210124
  3. KISQALI [Suspect]
     Active Substance: RIBOCICLIB
     Indication: Breast cancer metastatic
     Dosage: 200 MG, QD (21 DAYS INTAKE, 7 DAYS PAUSE)
     Route: 065
     Dates: start: 20201130, end: 20210124
  4. KISQALI [Suspect]
     Active Substance: RIBOCICLIB
     Dosage: 400 MG, QD (21 DAYS INTAKE, 7 DAYS PAUSE)
     Dates: start: 20200519, end: 20201129
  5. KISQALI [Suspect]
     Active Substance: RIBOCICLIB
     Dosage: 600 MG, QD (21 DAYS INTAKE, 7 DAYS PAUSE)
     Dates: start: 20200407, end: 20200504
  6. AFINITOR [Suspect]
     Active Substance: EVEROLIMUS
     Indication: Breast cancer metastatic
     Dosage: 10 MG, QD
     Route: 065
     Dates: start: 20210407
  7. AFINITOR [Suspect]
     Active Substance: EVEROLIMUS
     Dosage: 10 MG, QD
     Dates: start: 20210308

REACTIONS (3)
  - General physical health deterioration [Fatal]
  - Transaminases increased [Unknown]
  - Chronic kidney disease [Fatal]

NARRATIVE: CASE EVENT DATE: 20210521
